FAERS Safety Report 21550690 (Version 1)
Quarter: 2022Q4

REPORT INFORMATION
  Report Type: Spontaneous
  Country: DE (occurrence: DE)
  Receive Date: 20221103
  Receipt Date: 20221103
  Transmission Date: 20230112
  Serious: Yes (Hospitalization)
  Sender: FDA-Public Use
  Company Number: DE-TEVA-2022-DE-2822836

PATIENT
  Age: 10 Year
  Sex: Male

DRUGS (5)
  1. DIPYRONE [Suspect]
     Active Substance: DIPYRONE
     Indication: Pain
     Dosage: THREE TIMES DAILY (RELATIVE DAILY DOSE WAS 45.5 MG/KG)
     Route: 048
  2. LAMOTRIGINE [Suspect]
     Active Substance: LAMOTRIGINE
     Indication: Partial seizures
     Route: 065
  3. LAMOTRIGINE [Suspect]
     Active Substance: LAMOTRIGINE
     Route: 065
  4. TRAMADOL [Concomitant]
     Active Substance: TRAMADOL
     Indication: Pain
     Route: 065
  5. LEVETIRACETAM [Concomitant]
     Active Substance: LEVETIRACETAM
     Indication: Partial seizures
     Dosage: TWICE
     Route: 065

REACTIONS (1)
  - Drug eruption [Recovered/Resolved]
